FAERS Safety Report 8857459 (Version 3)
Quarter: 2013Q4

REPORT INFORMATION
  Report Type: Spontaneous
  Country: US (occurrence: US)
  Receive Date: 20121024
  Receipt Date: 20131017
  Transmission Date: 20140711
  Serious: Yes (Other)
  Sender: FDA-Public Use
  Company Number: US-BRISTOL-MYERS SQUIBB COMPANY-17036039

PATIENT
  Age: 69 Year
  Sex: Male
  Weight: 107.03 kg

DRUGS (4)
  1. COUMADIN TABS 5 MG [Suspect]
     Indication: ATRIAL FIBRILLATION
     Dosage: OTHER DOSES:7.5MG 4TIMES/WK (FRI,SUN,TUE,WED) + 6.25 MG REST OF WK.NOW 5.25MG,7MG,7.5MG
  2. METFORMIN HCL [Suspect]
     Indication: GLUCOSE TOLERANCE IMPAIRED
  3. ICAPS [Concomitant]
  4. LUTEIN [Concomitant]

REACTIONS (6)
  - Blue toe syndrome [Recovered/Resolved]
  - Glucose tolerance impaired [Unknown]
  - International normalised ratio fluctuation [Unknown]
  - Blood glucose fluctuation [Unknown]
  - Drug ineffective [Unknown]
  - Musculoskeletal pain [Unknown]
